FAERS Safety Report 5155917-X (Version None)
Quarter: 2006Q4

REPORT INFORMATION
  Report Type: 
  Country: None (occurrence: None)
  Receive Date: 20061114
  Receipt Date: 20060810
  Transmission Date: 20070319
  Serious: Yes (Other)
  Sender: FDA-Public Use
  Company Number: 2006097823

PATIENT
  Age: 46 Year
  Sex: Male
  Weight: 122.4712 kg

DRUGS (11)
  1. VIAGRA [Suspect]
     Indication: ERECTILE DYSFUNCTION
     Dosage: 50 MG (50 MG, 1 AS NECESSARY), ORAL
     Route: 048
     Dates: start: 19990101
  2. ETHANOL (ETHANOL) [Suspect]
     Indication: DRUG USE FOR UNKNOWN INDICATION
  3. ATENOLOL [Concomitant]
  4. DIAZEPAM [Concomitant]
  5. REMERON [Concomitant]
  6. CRESTOR [Concomitant]
  7. FIORINAL WITH CODEINE (ACETYLSALICYLIC ACID, BUTALBITAL, CAFFEINE, COD [Concomitant]
  8. VICOPROFEN [Concomitant]
  9. NASAL PREPARATIONS (NASAL PREPARATIONS) [Concomitant]
  10. LITHIUM CARBONATE [Concomitant]
  11. BUPROPION HCL [Concomitant]

REACTIONS (5)
  - DEATH OF PARENT [None]
  - DRUG INEFFECTIVE [None]
  - EMOTIONAL DISORDER [None]
  - STRESS [None]
  - VISUAL ACUITY REDUCED [None]
